FAERS Safety Report 21452687 (Version 1)
Quarter: 2022Q4

REPORT INFORMATION
  Report Type: Other
  Country: US (occurrence: None)
  Receive Date: 20221013
  Receipt Date: 20221013
  Transmission Date: 20230113
  Serious: No
  Sender: FDA-Public Use
  Company Number: US-ROCHE-3197604

PATIENT
  Age: 61 Year
  Sex: Female

DRUGS (1)
  1. OCREVUS [Suspect]
     Active Substance: OCRELIZUMAB
     Indication: Relapsing multiple sclerosis
     Dosage: ONGOING: YES, DATE OF MOST RECENT INFUSION: 16/DEC/2021, INFUSE 600MG INTRAVENOUSLY ONCE EVERY 6 MON
     Route: 042
     Dates: start: 20191205

REACTIONS (5)
  - Sinusitis [Recovered/Resolved]
  - Diarrhoea [Unknown]
  - Fungal infection [Unknown]
  - Candida infection [Unknown]
  - Asthenia [Unknown]
